FAERS Safety Report 8197017-0 (Version None)
Quarter: 2012Q1

REPORT INFORMATION
  Report Type: 
  Country: None (occurrence: None)
  Receive Date: 20120309
  Receipt Date: 20120228
  Transmission Date: 20120608
  Serious: Yes (Hospitalization)
  Sender: FDA-Public Use
  Company Number: US-ELI_LILLY_AND_COMPANY-US201012006388

PATIENT
  Sex: Female

DRUGS (14)
  1. FORTEO [Suspect]
     Dosage: 20 UG, DAILY (1/D)
  2. VITAMIN D [Concomitant]
  3. FORTEO [Suspect]
     Indication: OSTEOPOROSIS
     Dosage: 20 UG, DAILY (1/D)
     Route: 065
     Dates: start: 20101201
  4. ACETAMINOPHEN [Concomitant]
  5. CARISOPRODOL [Concomitant]
  6. MULTI-VITAMIN [Concomitant]
  7. SIMVASTATIN [Concomitant]
  8. AVAPRO [Concomitant]
  9. FORTEO [Suspect]
     Dosage: 20 UG, DAILY (1/D)
  10. ASPIRIN [Concomitant]
  11. MUSCLE RELAXANTS [Concomitant]
  12. FORTEO [Suspect]
     Dosage: 20 UG, QD
  13. NEXIUM [Concomitant]
  14. FORTEO [Suspect]
     Dosage: 20 UG, QD

REACTIONS (16)
  - ABDOMINAL PAIN UPPER [None]
  - WHITE BLOOD CELL COUNT INCREASED [None]
  - RIB FRACTURE [None]
  - TENDERNESS [None]
  - SINUS DISORDER [None]
  - FLANK PAIN [None]
  - BONE PAIN [None]
  - FEELING ABNORMAL [None]
  - INJECTION SITE HAEMORRHAGE [None]
  - INJURY ASSOCIATED WITH DEVICE [None]
  - HAEMORRHAGE [None]
  - PAIN IN EXTREMITY [None]
  - KIDNEY INFECTION [None]
  - DYSGEUSIA [None]
  - PAIN [None]
  - COUGH [None]
